FAERS Safety Report 10265039 (Version 1)
Quarter: 2014Q2

REPORT INFORMATION
  Report Type: Spontaneous
  Country: US (occurrence: US)
  Receive Date: 20140627
  Receipt Date: 20140627
  Transmission Date: 20141212
  Serious: No
  Sender: FDA-Public Use
  Company Number: US-PFIZER INC-2014175005

PATIENT
  Age: 77 Year
  Sex: Male

DRUGS (5)
  1. XALKORI [Suspect]
     Indication: LUNG NEOPLASM MALIGNANT
     Dosage: UNK
  2. SYNTHROID [Concomitant]
  3. FLOMAX [Concomitant]
  4. COLCRYS [Concomitant]
  5. COUMADIN [Concomitant]

REACTIONS (1)
  - Diarrhoea [Unknown]
